FAERS Safety Report 19296240 (Version 1)
Quarter: 2021Q2

REPORT INFORMATION
  Report Type: Spontaneous
  Country: FR (occurrence: FR)
  Receive Date: 20210524
  Receipt Date: 20210524
  Transmission Date: 20210717
  Serious: Yes (Hospitalization)
  Sender: FDA-Public Use
  Company Number: FR-TEVA-2021-FR-1914036

PATIENT
  Age: 40 Year
  Sex: Male

DRUGS (8)
  1. HEROIN [Suspect]
     Active Substance: DIAMORPHINE
     Dosage: UNSPECIFIED
     Route: 065
  2. TABAC (TOBACCO POWDER) [Suspect]
     Active Substance: TOBACCO LEAF
     Dosage: 15 CIGARETTES / DAY
     Route: 065
     Dates: start: 1994
  3. ALCOOL [Suspect]
     Active Substance: ALCOHOL
     Dosage: UNSPECIFIED
     Route: 048
     Dates: start: 1996
  4. LSD [Suspect]
     Active Substance: LYSERGIDE
     Dosage: UNSPECIFIED
     Route: 065
     Dates: start: 1998, end: 2002
  5. ECSTASY [Suspect]
     Active Substance: MIDOMAFETAMINE
     Dosage: UNSPECIFIED
     Route: 065
     Dates: start: 1998, end: 2002
  6. BUPRENORPHINE. [Suspect]
     Active Substance: BUPRENORPHINE
     Dosage: 0.8 MG
     Route: 065
     Dates: start: 2001
  7. CANNABIS [Suspect]
     Active Substance: CANNABIS SATIVA SUBSP. INDICA TOP
     Dosage: UNSPECIFIED
     Route: 055
     Dates: start: 1994, end: 2020
  8. COCAINE [Suspect]
     Active Substance: COCAINE
     Dosage: UNSPECIFIED
     Route: 065
     Dates: start: 1998

REACTIONS (2)
  - Drug abuse [Not Recovered/Not Resolved]
  - Bundle branch block right [Recovering/Resolving]

NARRATIVE: CASE EVENT DATE: 1994
